FAERS Safety Report 5042127-X (Version None)
Quarter: 2006Q2

REPORT INFORMATION
  Report Type: 
  Country: None (occurrence: None)
  Receive Date: 20060627
  Receipt Date: 20060608
  Transmission Date: 20061013
  Serious: Yes (Hospitalization)
  Sender: FDA-Public Use
  Company Number: US200603002781

PATIENT
  Age: 86 Year
  Sex: Female
  Weight: 45.4 kg

DRUGS (14)
  1. TERIPARATIDE (TERIPARATIDE) PEN, DISPOSABLE [Suspect]
     Dosage: 20 UG, SUBCUTANEOUS
     Route: 058
     Dates: start: 20051031
  2. FORTEO [Concomitant]
  3. ALTACE [Concomitant]
  4. NORVASC [Concomitant]
  5. PREVACID [Concomitant]
  6. ATENOLOL [Concomitant]
  7. LACTULOSE [Concomitant]
  8. PAXIL [Concomitant]
  9. ZANAFLEX [Concomitant]
  10. LEVOTHYROXINE SODIUM [Concomitant]
  11. CALCIUM GLUCONATE [Concomitant]
  12. TRAMADOL HCL [Concomitant]
  13. MULTIVITAMIN [Concomitant]
  14. VITAMIN D [Concomitant]

REACTIONS (17)
  - ASTHENIA [None]
  - ATELECTASIS [None]
  - BLOOD CALCIUM INCREASED [None]
  - BLOOD CULTURE POSITIVE [None]
  - BLOOD PRESSURE DIASTOLIC INCREASED [None]
  - BLOOD SODIUM DECREASED [None]
  - BLOOD THYROID STIMULATING HORMONE INCREASED [None]
  - CELLULITIS [None]
  - DECUBITUS ULCER [None]
  - DEMENTIA [None]
  - DIFFICULTY IN WALKING [None]
  - FAILURE TO THRIVE [None]
  - FEEDING DISORDER [None]
  - PERFORMANCE STATUS DECREASED [None]
  - STAPHYLOCOCCAL INFECTION [None]
  - WEIGHT DECREASED [None]
  - WHITE BLOOD CELLS URINE POSITIVE [None]
